FAERS Safety Report 9013579 (Version 2)
Quarter: 2013Q1

REPORT INFORMATION
  Report Type: Spontaneous
  Country: FR (occurrence: FR)
  Receive Date: 20130115
  Receipt Date: 20130124
  Transmission Date: 20140127
  Serious: Yes (Death, Hospitalization, Other)
  Sender: FDA-Public Use
  Company Number: PHHY2013FR003119

PATIENT
  Age: 85 Year
  Sex: Female
  Weight: 38 kg

DRUGS (1)
  1. AFINITOR [Suspect]
     Indication: PANCREATIC NEUROENDOCRINE TUMOUR
     Dosage: 5 MG, DAILY
     Route: 048
     Dates: start: 20121010, end: 20121030

REACTIONS (4)
  - Death [Fatal]
  - Mucosal inflammation [Not Recovered/Not Resolved]
  - Bullous lung disease [Not Recovered/Not Resolved]
  - Erythema [Unknown]
